FAERS Safety Report 20374524 (Version 1)
Quarter: 2022Q1

REPORT INFORMATION
  Report Type: Report from Study
  Country: US (occurrence: US)
  Receive Date: 20220125
  Receipt Date: 20220125
  Transmission Date: 20220423
  Serious: Yes (Death, Other)
  Sender: FDA-Public Use
  Company Number: US-PFIZER INC-202200124045

PATIENT

DRUGS (7)
  1. RITUXIMAB [Suspect]
     Active Substance: RITUXIMAB
     Indication: Central nervous system lymphoma
     Dosage: 500 MG/M2, CYCLIC (5-7 DOSES)
  2. METHOTREXATE SODIUM [Suspect]
     Active Substance: METHOTREXATE SODIUM
     Indication: Central nervous system lymphoma
     Dosage: UNK UNK, CYCLIC (3.5 GM/M2)
  3. VINCRISTINE SULFATE [Suspect]
     Active Substance: VINCRISTINE SULFATE
     Indication: Central nervous system lymphoma
     Dosage: 1.4 MG/M2, CYCLIC
  4. BUSULFAN [Suspect]
     Active Substance: BUSULFAN
     Indication: Central nervous system lymphoma
     Dosage: 3.2 MG/KG, CYCLIC
  5. PROCARBAZINE [Suspect]
     Active Substance: PROCARBAZINE
     Indication: Central nervous system lymphoma
     Dosage: 100 MG/M2, CYCLIC
  6. THIOTEPA [Suspect]
     Active Substance: THIOTEPA
     Indication: Central nervous system lymphoma
     Dosage: 250 MG/M2, CYCLIC
  7. CYCLOPHOSPHAMIDE [Suspect]
     Active Substance: CYCLOPHOSPHAMIDE
     Indication: Central nervous system lymphoma
     Dosage: 60 MG/KG, CYCLIC

REACTIONS (1)
  - Death [Fatal]
